FAERS Safety Report 13084398 (Version 1)
Quarter: 2017Q1

REPORT INFORMATION
  Report Type: Spontaneous
  Country: US (occurrence: US)
  Receive Date: 20170102
  Receipt Date: 20170102
  Transmission Date: 20170428
  Serious: Yes (Hospitalization)
  Sender: FDA-Public Use
  Company Number: None

PATIENT
  Age: 82 Year
  Sex: Female
  Weight: 67.1 kg

DRUGS (24)
  1. LETRAZOLE [Concomitant]
     Active Substance: LETROZOLE
  2. LETROZOLE. [Concomitant]
     Active Substance: LETROZOLE
  3. METOPROLOL SUCCINATE. [Concomitant]
     Active Substance: METOPROLOL SUCCINATE
  4. ASCORBIC ACID. [Concomitant]
     Active Substance: ASCORBIC ACID
  5. METHENAMINE-SODIUM SALICYLATE [Concomitant]
  6. POLYETHYLENE GLYCOL [Concomitant]
     Active Substance: POLYETHYLENE GLYCOLS
  7. AMIODARONE [Suspect]
     Active Substance: AMIODARONE
     Indication: VENTRICULAR TACHYCARDIA
     Dosage: ?          OTHER FREQUENCY:ONCE;?
     Route: 040
     Dates: start: 20161015, end: 20161015
  8. ASPIRIN. [Concomitant]
     Active Substance: ASPIRIN
  9. FUROSEMIDE. [Concomitant]
     Active Substance: FUROSEMIDE
  10. LEVOTHYROXINE. [Concomitant]
     Active Substance: LEVOTHYROXINE
  11. MIRTAZAPINE. [Concomitant]
     Active Substance: MIRTAZAPINE
  12. DIPHENHYDRAMINE-ACETAMINOPHEN [Concomitant]
  13. ESOMEPRAZOLE [Concomitant]
     Active Substance: ESOMEPRAZOLE
  14. SYNTHROID [Concomitant]
     Active Substance: LEVOTHYROXINE SODIUM
  15. ACETAMINOPHEN. [Concomitant]
     Active Substance: ACETAMINOPHEN
  16. ATORVASTATIN [Concomitant]
     Active Substance: ATORVASTATIN
  17. DOCUSATE NA [Concomitant]
     Active Substance: DOCUSATE
  18. POTASSIUM CHLORIDE. [Concomitant]
     Active Substance: POTASSIUM CHLORIDE
  19. RIVAROXABAN [Concomitant]
     Active Substance: RIVAROXABAN
  20. PHENAZOPYRIDINE. [Concomitant]
     Active Substance: PHENAZOPYRIDINE
  21. AMIODARONE [Suspect]
     Active Substance: AMIODARONE
     Indication: VENTRICULAR TACHYCARDIA
     Route: 048
     Dates: start: 20161015, end: 20161018
  22. CEFTRIAXONE. [Concomitant]
     Active Substance: CEFTRIAXONE
  23. DILTIAZEM. [Concomitant]
     Active Substance: DILTIAZEM
  24. TOLTERODINE [Concomitant]
     Active Substance: TOLTERODINE

REACTIONS (6)
  - Miliaria [None]
  - Drug eruption [None]
  - Rash generalised [None]
  - Blister [None]
  - Dermatitis contact [None]
  - Fungal skin infection [None]

NARRATIVE: CASE EVENT DATE: 20161020
